FAERS Safety Report 4602556-2 (Version None)
Quarter: 2005Q1

REPORT INFORMATION
  Report Type: 
  Country: None (occurrence: None)
  Receive Date: 20050309
  Receipt Date: 20050111
  Transmission Date: 20050727
  Serious: Yes (Other)
  Sender: FDA-Public Use
  Company Number: PHNU2005DE00502

PATIENT
  Age: 56 Year
  Sex: Female

DRUGS (1)
  1. ELIDEL [Suspect]
     Indication: DERMATITIS ATOPIC
     Dosage: 1 DF, BID
     Route: 061
     Dates: start: 20041125, end: 20041101

REACTIONS (6)
  - BLOOD TRIGLYCERIDES INCREASED [None]
  - BLOOD URIC ACID INCREASED [None]
  - LIVER FUNCTION TEST ABNORMAL [None]
  - RHEUMATIC FEVER [None]
  - RHEUMATOID FACTOR INCREASED [None]
  - WHITE BLOOD CELL COUNT INCREASED [None]
